FAERS Safety Report 13724473 (Version 4)
Quarter: 2017Q3

REPORT INFORMATION
  Report Type: Spontaneous
  Country: FR (occurrence: FR)
  Receive Date: 20170706
  Receipt Date: 20170807
  Transmission Date: 20171127
  Serious: Yes (Hospitalization, Other)
  Sender: FDA-Public Use
  Company Number: FR-PFIZER INC-2017286954

PATIENT
  Age: 90 Year
  Sex: Female
  Weight: 69 kg

DRUGS (8)
  1. DESLORATADINE. [Concomitant]
     Active Substance: DESLORATADINE
     Dosage: 5 MG, 1X/DAY (MORNING)
     Route: 048
  2. SOTALOL HYDROCHLORIDE. [Suspect]
     Active Substance: SOTALOL HYDROCHLORIDE
     Indication: HYPERTENSION
     Dosage: 120 MG, DAILY (1/2 DF IN THE MORNING AND 1 DFIN THE EVENING)
     Route: 048
  3. ALDACTONE [Suspect]
     Active Substance: SPIRONOLACTONE
     Indication: HYPERTENSION
     Dosage: 25 MG, 1X/DAY
     Route: 048
  4. ATACAND [Suspect]
     Active Substance: CANDESARTAN CILEXETIL
     Indication: HYPERTENSION
     Dosage: 1 DF, DAILY (MORNING)
     Route: 048
  5. KARDEGIC [Concomitant]
     Active Substance: ASPIRIN LYSINE
     Dosage: 1 DF, 1X/DAY (MORNING)
     Route: 048
  6. PAROXETINE. [Suspect]
     Active Substance: PAROXETINE
     Indication: MENTAL DISORDER
     Dosage: 30 MG, DAILY (MIDDAY)
     Route: 048
  7. ATORVASTATINE /01326101/ [Concomitant]
     Active Substance: ATORVASTATIN
     Dosage: 10 MG, 1X/DAY (MORNING)
     Route: 048
  8. TRAMADOL HYDROCHLORIDE AND PARACETAMOL [Suspect]
     Active Substance: ACETAMINOPHEN\TRAMADOL HYDROCHLORIDE
     Indication: PAIN
     Dosage: 1 DF, 4X/DAY
     Route: 048

REACTIONS (5)
  - Orthostatic hypotension [Unknown]
  - Fall [Recovered/Resolved]
  - Loss of consciousness [Unknown]
  - Cardiac failure [Unknown]
  - Lung disorder [Unknown]

NARRATIVE: CASE EVENT DATE: 20170323
